FAERS Safety Report 24912762 (Version 3)
Quarter: 2025Q1

REPORT INFORMATION
  Report Type: Spontaneous
  Country: IE (occurrence: IE)
  Receive Date: 20250131
  Receipt Date: 20250306
  Transmission Date: 20250409
  Serious: Yes (Death, Hospitalization)
  Sender: ROCHE
  Company Number: IE-ROCHE-10000148150

PATIENT
  Age: 70 Year

DRUGS (1)
  1. COLUMVI [Suspect]
     Active Substance: GLOFITAMAB-GXBM
     Indication: Diffuse large B-cell lymphoma refractory
     Route: 065

REACTIONS (2)
  - Immune effector cell-associated neurotoxicity syndrome [Recovered/Resolved]
  - Disease progression [Fatal]
